FAERS Safety Report 18049406 (Version 1)
Quarter: 2020Q3

REPORT INFORMATION
  Report Type: Spontaneous
  Country: US (occurrence: US)
  Receive Date: 20200721
  Receipt Date: 20200721
  Transmission Date: 20201103
  Serious: No
  Sender: FDA-Public Use
  Company Number: US-SA-2020SA179951

PATIENT

DRUGS (1)
  1. DUPIXENT [Suspect]
     Active Substance: DUPILUMAB
     Indication: NASAL POLYPS
     Dosage: UNK UNK, QOW IN THE EVENING
     Route: 058
     Dates: start: 201911

REACTIONS (3)
  - Toothache [Unknown]
  - Sinusitis [Unknown]
  - Dry eye [Unknown]

NARRATIVE: CASE EVENT DATE: 202004
